FAERS Safety Report 9793256 (Version 3)
Quarter: 2014Q1

REPORT INFORMATION
  Report Type: Spontaneous
  Country: US (occurrence: US)
  Receive Date: 20140102
  Receipt Date: 20140314
  Transmission Date: 20141002
  Serious: No
  Sender: FDA-Public Use
  Company Number: US-TEVA-453714USA

PATIENT
  Sex: Male
  Weight: 89.89 kg

DRUGS (3)
  1. PROAIR HFA [Suspect]
     Indication: HYPERSENSITIVITY
     Route: 055
  2. ALL OTHER NON-THERAPEUTIC PRODUCTS [Concomitant]
     Indication: HYPERTENSION
  3. ALL OTHER NON-THERAPEUTIC PRODUCTS [Concomitant]
     Indication: BLOOD CHOLESTEROL INCREASED

REACTIONS (1)
  - Dyspnoea [Unknown]
